FAERS Safety Report 24342620 (Version 1)
Quarter: 2024Q3

REPORT INFORMATION
  Report Type: Spontaneous
  Country: FR (occurrence: FR)
  Receive Date: 20240920
  Receipt Date: 20240920
  Transmission Date: 20241017
  Serious: Yes (Other)
  Sender: AUROBINDO
  Company Number: FR-DSJP-DSE-2024-143042

PATIENT
  Age: 61 Year
  Sex: Female
  Weight: 65 kg

DRUGS (11)
  1. RAMIPRIL [Suspect]
     Active Substance: RAMIPRIL
     Indication: Product used for unknown indication
     Dosage: 5 MILLIGRAM, ONCE A DAY
     Route: 065
  2. RAMIPRIL [Suspect]
     Active Substance: RAMIPRIL
     Dosage: 2.5 MILLIGRAM, ONCE A DAY
     Route: 065
  3. AUGMENTIN [Suspect]
     Active Substance: AMOXICILLIN\CLAVULANATE POTASSIUM
     Indication: Product used for unknown indication
     Dosage: 1 GRAM, 3 TIMES A DAY
     Route: 065
  4. ENHERTU [Suspect]
     Active Substance: FAM-TRASTUZUMAB DERUXTECAN-NXKI
     Indication: Breast cancer metastatic
     Dosage: 5.4 MG/KG, CYCLIC
     Route: 065
     Dates: start: 20240229
  5. ENHERTU [Suspect]
     Active Substance: FAM-TRASTUZUMAB DERUXTECAN-NXKI
     Indication: HER2 low breast cancer
     Dosage: CYCLICAL (20 PERCENT REDUCTION)
     Route: 065
     Dates: start: 20240808
  6. ENHERTU [Suspect]
     Active Substance: FAM-TRASTUZUMAB DERUXTECAN-NXKI
     Dosage: CYCLICAL (20 PERCENT REDUCTION)
     Route: 065
     Dates: end: 20240502
  7. ENHERTU [Suspect]
     Active Substance: FAM-TRASTUZUMAB DERUXTECAN-NXKI
     Dosage: CYCLICAL (20 PERCENT REDUCTION)
     Route: 065
     Dates: start: 20240404
  8. ENHERTU [Suspect]
     Active Substance: FAM-TRASTUZUMAB DERUXTECAN-NXKI
     Dosage: UNK, 20 PERCENT REDUCTION
     Route: 065
     Dates: start: 20240510
  9. ENHERTU [Suspect]
     Active Substance: FAM-TRASTUZUMAB DERUXTECAN-NXKI
     Dosage: UNK, 20 PERCENT REDUCTION
     Route: 065
     Dates: start: 20240606
  10. ENHERTU [Suspect]
     Active Substance: FAM-TRASTUZUMAB DERUXTECAN-NXKI
     Dosage: UNK, 20 PERCENT REDUCTION
     Route: 065
     Dates: start: 20240718
  11. UNSPECIFIED INGREDIENT [Concomitant]
     Active Substance: UNSPECIFIED INGREDIENT
     Indication: Antiemetic supportive care
     Dosage: UNK
     Route: 065

REACTIONS (22)
  - Anaemia [Unknown]
  - Interstitial lung disease [Unknown]
  - Neutropenia [Unknown]
  - Pneumonia [Unknown]
  - Atelectasis [Unknown]
  - Asthenia [Unknown]
  - Cough [Not Recovered/Not Resolved]
  - Dermatitis allergic [Unknown]
  - Dyspnoea [Unknown]
  - Ejection fraction decreased [Unknown]
  - Gastrointestinal motility disorder [Unknown]
  - Gamma-glutamyltransferase increased [Unknown]
  - Lung opacity [Unknown]
  - Mucosal inflammation [Recovered/Resolved]
  - Musculoskeletal pain [Unknown]
  - Myalgia [Unknown]
  - Nausea [Unknown]
  - Pain [Recovering/Resolving]
  - Vomiting [Unknown]
  - Weight increased [Not Recovered/Not Resolved]
  - Wound infection [Unknown]
  - Intentional product use issue [Not Recovered/Not Resolved]

NARRATIVE: CASE EVENT DATE: 20240404
